FAERS Safety Report 6714085-0 (Version None)
Quarter: 2010Q2

REPORT INFORMATION
  Report Type: 
  Country: None (occurrence: None)
  Receive Date: 20100506
  Receipt Date: 20100404
  Transmission Date: 20101027
  Serious: Yes (Hospitalization)
  Sender: FDA-Public Use
  Company Number: DE-WYE-G04055609

PATIENT
  Age: 72 Year
  Sex: Female
  Weight: 80 kg

DRUGS (18)
  1. TAZOBAC EF [Suspect]
     Indication: UROSEPSIS
     Route: 042
     Dates: start: 20090315, end: 20090324
  2. SULTAMICILLIN [Suspect]
     Indication: UROSEPSIS
     Route: 042
     Dates: start: 20090313, end: 20090314
  3. TAVANIC [Suspect]
     Indication: URINARY TRACT INFECTION
     Route: 048
     Dates: start: 20090203, end: 20090209
  4. INSULIN ACTRAPID [Concomitant]
     Indication: TYPE 2 DIABETES MELLITUS
     Dosage: 3 TIMES PER DAY, DOSE AS REQUIRED
     Route: 058
     Dates: start: 20090101
  5. ALLOPURINOL [Concomitant]
     Indication: GOUT
     Route: 048
     Dates: start: 20090201, end: 20090422
  6. ACETYLSALICYLIC ACID [Concomitant]
     Indication: ISCHAEMIC HEART DISEASE PROPHYLAXIS
     Route: 048
     Dates: start: 20090101
  7. DIGITOXIN [Concomitant]
     Indication: ATRIAL FIBRILLATION
     Route: 048
     Dates: start: 20090101, end: 20090422
  8. FERRO SANOL [Concomitant]
     Indication: IRON DEFICIENCY ANAEMIA
     Route: 048
     Dates: start: 20090301, end: 20090422
  9. FUROSEMIDE [Concomitant]
     Indication: HYPERTENSION
     Route: 048
     Dates: start: 20090101
  10. GABAPENTIN [Concomitant]
     Indication: PHANTOM PAIN
     Route: 048
     Dates: start: 20090201, end: 20090422
  11. ISCOVER [Concomitant]
     Indication: MYOCARDIAL INFARCTION
     Route: 048
     Dates: start: 20090101
  12. LEVEMIR [Concomitant]
     Indication: TYPE 2 DIABETES MELLITUS
     Route: 058
     Dates: start: 20090101
  13. METOPROLOL [Concomitant]
     Indication: HYPERTENSION
     Route: 048
     Dates: start: 20090101, end: 20090429
  14. RAMIPRIL [Concomitant]
     Indication: HYPERTENSION
     Dates: start: 20090201, end: 20090422
  15. TORASEMIDE [Concomitant]
     Indication: HYPERTENSION
     Route: 048
     Dates: start: 20090301, end: 20090422
  16. XIPAMIDE [Concomitant]
     Indication: HYPERTENSION
     Route: 048
     Dates: start: 20090101, end: 20090422
  17. PANTOZOL [Suspect]
     Indication: PROPHYLAXIS AGAINST GASTROINTESTINAL ULCER
     Route: 048
     Dates: start: 20090101
  18. METRONIDAZOLE [Concomitant]
     Indication: DIARRHOEA
     Route: 048
     Dates: start: 20090217, end: 20090226

REACTIONS (1)
  - CLOSTRIDIUM DIFFICILE COLITIS [None]
